FAERS Safety Report 15975185 (Version 1)
Quarter: 2019Q1

REPORT INFORMATION
  Report Type: Spontaneous
  Country: FR (occurrence: FR)
  Receive Date: 20190218
  Receipt Date: 20190218
  Transmission Date: 20190418
  Serious: Yes (Hospitalization, Disabling, Other)
  Sender: FDA-Public Use
  Company Number: FR-ROCHE-2266555

PATIENT
  Age: 89 Year
  Sex: Female
  Weight: 50 kg

DRUGS (2)
  1. LUCENTIS [Suspect]
     Active Substance: RANIBIZUMAB
     Indication: NEOVASCULAR AGE-RELATED MACULAR DEGENERATION
     Dosage: 1 DF, QMO
     Route: 031
  2. LUCENTIS [Suspect]
     Active Substance: RANIBIZUMAB
     Dosage: 1 DF, QMO
     Route: 031
     Dates: start: 20180529

REACTIONS (8)
  - Eye pain [Unknown]
  - Ocular hyperaemia [Unknown]
  - Endophthalmitis [Unknown]
  - Eye inflammation [Unknown]
  - Uveitis [Unknown]
  - Anterior chamber cell [Unknown]
  - Visual acuity reduced [Unknown]
  - Vitritis [Unknown]

NARRATIVE: CASE EVENT DATE: 20180604
